FAERS Safety Report 10195621 (Version 2)
Quarter: 2014Q2

REPORT INFORMATION
  Report Type: Spontaneous
  Country: FR (occurrence: FR)
  Receive Date: 20140527
  Receipt Date: 20140610
  Transmission Date: 20141212
  Serious: Yes (Other)
  Sender: FDA-Public Use
  Company Number: FR-ROCHE-1408350

PATIENT
  Age: 77 Year
  Sex: Male

DRUGS (2)
  1. LUCENTIS [Suspect]
     Indication: GLAUCOMA
     Dosage: 1 INJECTION PER TRIMESTER
     Route: 050
     Dates: start: 20091218
  2. PROTON [Concomitant]
     Route: 065
     Dates: start: 20061229

REACTIONS (2)
  - Metastases to liver [Unknown]
  - Off label use [Unknown]
